FAERS Safety Report 7544299-1 (Version None)
Quarter: 2011Q2

REPORT INFORMATION
  Report Type: 
  Country: None (occurrence: None)
  Receive Date: 20110613
  Receipt Date: 20080220
  Transmission Date: 20111010
  Serious: Yes (Hospitalization, Other)
  Sender: FDA-Public Use
  Company Number: PHNR2007AU02184

PATIENT
  Sex: Female

DRUGS (6)
  1. ATORVASTATIN [Concomitant]
     Dosage: 80 MG/DAY
  2. ATENOLOL [Concomitant]
     Dosage: 50 MG/DAY
  3. BENZTROPINE MESYLATE [Concomitant]
     Dosage: 3 MG/DAY (1.5 TABLET)
  4. METFORMIN HCL [Concomitant]
     Dosage: 1 G, TID
  5. CLOZAPINE [Suspect]
     Indication: SCHIZOPHRENIA
     Dosage: 600 MG
     Route: 048
     Dates: start: 20030619, end: 20071208
  6. GLICLAZIDE [Concomitant]
     Dosage: 30 MG, UNK

REACTIONS (13)
  - BLOOD UREA INCREASED [None]
  - BLOOD LACTATE DEHYDROGENASE INCREASED [None]
  - BLOOD BICARBONATE DECREASED [None]
  - ANION GAP INCREASED [None]
  - BLOOD ALBUMIN DECREASED [None]
  - RENAL FAILURE [None]
  - PROTEIN TOTAL DECREASED [None]
  - BLOOD CREATININE INCREASED [None]
  - NEUTROPHIL COUNT INCREASED [None]
  - HAEMOGLOBIN DECREASED [None]
  - BLOOD POTASSIUM INCREASED [None]
  - WHITE BLOOD CELL COUNT INCREASED [None]
  - BLOOD SODIUM DECREASED [None]
